FAERS Safety Report 13523883 (Version 1)
Quarter: 2017Q2

REPORT INFORMATION
  Report Type: Spontaneous
  Country: US (occurrence: US)
  Receive Date: 20170508
  Receipt Date: 20170508
  Transmission Date: 20170830
  Serious: No
  Sender: FDA-Public Use
  Company Number: US-VIFOR (INTERNATIONAL) INC.-VIT-2017-02031

PATIENT
  Age: 58 Year
  Sex: Male

DRUGS (8)
  1. NORVASC [Concomitant]
     Active Substance: AMLODIPINE BESYLATE
  2. LYRICA [Concomitant]
     Active Substance: PREGABALIN
  3. VICTOZA [Concomitant]
     Active Substance: LIRAGLUTIDE
  4. NOVOLOG [Concomitant]
     Active Substance: INSULIN ASPART
  5. ULORIC [Concomitant]
     Active Substance: FEBUXOSTAT
  6. VELTASSA [Suspect]
     Active Substance: PATIROMER
     Indication: HYPERKALAEMIA
     Route: 048
     Dates: start: 201701
  7. GLIPIZIDE. [Concomitant]
     Active Substance: GLIPIZIDE
  8. LISINOPRIL. [Concomitant]
     Active Substance: LISINOPRIL

REACTIONS (1)
  - Constipation [Unknown]

NARRATIVE: CASE EVENT DATE: 201702
